FAERS Safety Report 13130558 (Version 2)
Quarter: 2017Q1

REPORT INFORMATION
  Report Type: Spontaneous
  Country: JP (occurrence: JP)
  Receive Date: 20170119
  Receipt Date: 20170224
  Transmission Date: 20170428
  Serious: Yes (Death, Other)
  Sender: FDA-Public Use
  Company Number: JP-PFIZER INC-2017019886

PATIENT
  Age: 78 Year
  Sex: Male
  Weight: 56.7 kg

DRUGS (4)
  1. RECOMODULIN [Suspect]
     Active Substance: THROMBOMODULIN ALFA
     Indication: DISSEMINATED INTRAVASCULAR COAGULATION
     Dosage: 6400 IU, 1X/DAY
     Route: 041
     Dates: start: 20161124, end: 20161129
  2. VFEND [Suspect]
     Active Substance: VORICONAZOLE
     Indication: BRONCHOPULMONARY ASPERGILLOSIS
     Dosage: 100 MG, 1X/DAY
     Route: 041
     Dates: start: 20161118, end: 20161125
  3. PALUX [Suspect]
     Active Substance: ALPROSTADIL
     Indication: CIRCULATORY COLLAPSE
     Dosage: 10 UG, 1X/DAY
     Route: 041
     Dates: start: 20161124, end: 20161127
  4. MEROPENEM. [Suspect]
     Active Substance: MEROPENEM
     Indication: PNEUMONIA
     Dosage: 0.5 G, 2X/DAY
     Route: 041
     Dates: start: 20161116, end: 20161125

REACTIONS (4)
  - Disseminated intravascular coagulation [Fatal]
  - Pulmonary alveolar haemorrhage [Fatal]
  - Peripheral circulatory failure [Unknown]
  - Epistaxis [Unknown]

NARRATIVE: CASE EVENT DATE: 20161122
